FAERS Safety Report 21795971 (Version 6)
Quarter: 2024Q2

REPORT INFORMATION
  Report Type: Spontaneous
  Country: IN (occurrence: IN)
  Receive Date: 20221229
  Receipt Date: 20240528
  Transmission Date: 20240716
  Serious: Yes (Other)
  Sender: FDA-Public Use
  Company Number: IN-PFIZER INC-2020461873

PATIENT
  Age: 68 Year
  Sex: Female

DRUGS (6)
  1. SUTENT [Suspect]
     Active Substance: SUNITINIB MALATE
     Indication: Gastrointestinal stromal tumour
     Dosage: UNK
     Route: 048
     Dates: start: 202010
  2. SUTENT [Suspect]
     Active Substance: SUNITINIB MALATE
     Dosage: 1X/DAY, 2 WEEKS ON AND 1 WEEK OFF
     Route: 048
     Dates: start: 20201106
  3. SUTENT [Suspect]
     Active Substance: SUNITINIB MALATE
     Dosage: ONCE DAILY FOR 3 MONTHS, 1 WEEK GAP
     Route: 048
  4. SUTENT [Suspect]
     Active Substance: SUNITINIB MALATE
     Dosage: ONCE DAILY, 1 WEEK ON AND 1 WEEK OFF FOR 3 MONTHS
     Route: 048
  5. SUTENT [Suspect]
     Active Substance: SUNITINIB MALATE
     Dosage: UNK
     Dates: end: 202302
  6. SUTENT [Suspect]
     Active Substance: SUNITINIB MALATE
     Dosage: UNK
     Dates: start: 2023

REACTIONS (13)
  - Toothache [Recovered/Resolved]
  - Tooth disorder [Recovered/Resolved]
  - Furuncle [Unknown]
  - Nausea [Unknown]
  - Alopecia [Unknown]
  - Blister [Unknown]
  - Decreased appetite [Unknown]
  - Malaise [Unknown]
  - Palmar-plantar erythrodysaesthesia syndrome [Unknown]
  - Stomatitis [Unknown]
  - Vomiting [Unknown]
  - Mouth ulceration [Not Recovered/Not Resolved]
  - Off label use [Unknown]

NARRATIVE: CASE EVENT DATE: 20230901
